FAERS Safety Report 7892638-4 (Version None)
Quarter: 2011Q4

REPORT INFORMATION
  Report Type: 
  Country: None (occurrence: None)
  Receive Date: 20111102
  Receipt Date: 20111019
  Transmission Date: 20120403
  Serious: Yes (Other)
  Sender: FDA-Public Use
  Company Number: DSA_48048_2011

PATIENT
  Sex: Female

DRUGS (11)
  1. CARDIZEM LA [Suspect]
     Indication: PRODUCT USED FOR UNKNOWN INDICATION
     Dosage: (DF)
  2. PROZAC [Concomitant]
  3. LAXATIVES [Concomitant]
  4. DIAZEPAM [Concomitant]
  5. LISINOPRIL [Suspect]
     Indication: PRODUCT USED FOR UNKNOWN INDICATION
     Dosage: (10 MG BID)
  6. VITAMIN D [Concomitant]
  7. DIGOXIN [Concomitant]
  8. GILENYA [Suspect]
     Indication: PRODUCT USED FOR UNKNOWN INDICATION
     Dosage: (0.5 MG QD ORAL)
     Route: 048
  9. LEVOTHYROXINE SODIUM [Suspect]
     Indication: THYROID DISORDER
     Dosage: (300 MG BID ORAL)
     Route: 048
  10. CLONIDINE HYDROCHLORIDE [Suspect]
     Indication: PRODUCT USED FOR UNKNOWN INDICATION
     Dosage: 10 MG BID)
  11. DYAZIDE [Concomitant]

REACTIONS (3)
  - ATRIOVENTRICULAR BLOCK [None]
  - BLOOD PRESSURE INADEQUATELY CONTROLLED [None]
  - BLOOD PRESSURE INCREASED [None]
